FAERS Safety Report 17153640 (Version 1)
Quarter: 2019Q4

REPORT INFORMATION
  Report Type: Spontaneous
  Country: GB (occurrence: GB)
  Receive Date: 20191213
  Receipt Date: 20191213
  Transmission Date: 20200122
  Serious: Yes (Other)
  Sender: FDA-Public Use
  Company Number: GB-NAPPMUNDI-GBR-2019-0073613

PATIENT
  Age: 69 Year
  Sex: Female
  Weight: 95 kg

DRUGS (9)
  1. CITALOPRAM [Concomitant]
     Active Substance: CITALOPRAM HYDROBROMIDE
     Dosage: 1 DF, DAILY
     Dates: start: 20190515
  2. BUPRENORPHINE. [Concomitant]
     Active Substance: BUPRENORPHINE
     Dosage: 1 DF, WEEKLY
     Dates: start: 20190710, end: 20191004
  3. BUTEC [Suspect]
     Active Substance: BUPRENORPHINE
     Indication: ANALGESIC THERAPY
     Dosage: 20 MCG, Q1H (1 DF WEEKLY)
     Route: 062
     Dates: start: 20190819
  4. AMITRIPTYLINE HYDROCHLORIDE. [Concomitant]
     Active Substance: AMITRIPTYLINE HYDROCHLORIDE
     Dosage: 1 DF, NOCTE
     Dates: start: 20190528
  5. ORAMORPH [Concomitant]
     Active Substance: MORPHINE SULFATE
     Dosage: UNK (2.5MLS TO 5MLS WHEN REQUIRED)
     Dates: start: 20190920, end: 20191018
  6. BUTRANS [Concomitant]
     Active Substance: BUPRENORPHINE
     Dosage: 1 DF, WEEKLY
     Dates: start: 20191107
  7. FUROSEMIDE. [Concomitant]
     Active Substance: FUROSEMIDE
     Dosage: 1 DF, AM
     Dates: start: 20190515
  8. METFORMIN [Concomitant]
     Active Substance: METFORMIN HYDROCHLORIDE
     Dosage: UNK (TAKE TWO TABLET WITH BREAKFAST TAKE ONE WITH EV...)
     Dates: start: 20190515, end: 20191030
  9. ATORVASTATIN [Concomitant]
     Active Substance: ATORVASTATIN
     Dosage: 1 DF, DAILY
     Dates: start: 20190515

REACTIONS (3)
  - Application site erythema [Unknown]
  - Dermatitis [Recovering/Resolving]
  - Application site exfoliation [Unknown]

NARRATIVE: CASE EVENT DATE: 20191115
